FAERS Safety Report 19521597 (Version 2)
Quarter: 2021Q3

REPORT INFORMATION
  Report Type: Spontaneous
  Country: DE (occurrence: DE)
  Receive Date: 20210713
  Receipt Date: 20210802
  Transmission Date: 20211014
  Serious: Yes (Other)
  Sender: FDA-Public Use
  Company Number: DE-ESPERIONTHERAPEUTICS-2021DEU01387

PATIENT
  Age: 70 Year
  Sex: Male
  Weight: 87 kg

DRUGS (6)
  1. NUSTENDI [Suspect]
     Active Substance: BEMPEDOIC ACID\EZETIMIBE
     Indication: HYPERLIPIDAEMIA
  2. XARELTO [Concomitant]
     Active Substance: RIVAROXABAN
     Indication: ARTERIOSCLEROSIS
     Dosage: 5 MG, QD
     Route: 048
     Dates: start: 20201209
  3. SEVIKAR HCT [Concomitant]
     Active Substance: AMLODIPINE BESYLATE\HYDROCHLOROTHIAZIDE\OLMESARTAN MEDOXOMIL
     Indication: HYPERTENSION
     Dosage: 40/5/12.5 MG, QD
     Route: 048
     Dates: start: 20170711
  4. NUSTENDI [Suspect]
     Active Substance: BEMPEDOIC ACID\EZETIMIBE
     Indication: BLOOD CHOLESTEROL INCREASED
     Dosage: 1 DF, QD
     Route: 048
     Dates: start: 20210502, end: 20210531
  5. ASPIRIN. [Concomitant]
     Active Substance: ASPIRIN
     Indication: ARTERIOSCLEROSIS
     Dosage: 100 MG, QD
     Route: 048
     Dates: start: 20201209
  6. DEKRISTOL [Concomitant]
     Active Substance: CHOLECALCIFEROL
     Indication: PRODUCT USED FOR UNKNOWN INDICATION
     Dosage: 20000 IU, ONCE EVERY 1 WK
     Route: 048
     Dates: start: 20210212

REACTIONS (6)
  - Hepatic pain [Recovered/Resolved]
  - Blood urea increased [Recovered/Resolved]
  - Angina pectoris [Recovered/Resolved]
  - Biliary colic [Recovered/Resolved]
  - Abdominal discomfort [Recovered/Resolved]
  - Headache [Recovered/Resolved]

NARRATIVE: CASE EVENT DATE: 202105
